FAERS Safety Report 24305329 (Version 3)
Quarter: 2025Q3

REPORT INFORMATION
  Report Type: Spontaneous
  Country: EU (occurrence: EU)
  Receive Date: 20240911
  Receipt Date: 20250809
  Transmission Date: 20251021
  Serious: Yes (Other)
  Sender: ALEXION PHARMACEUTICALS
  Company Number: None

PATIENT
  Age: 70 Year
  Sex: Female
  Weight: 74 kg

DRUGS (2)
  1. TEZSPIRE [Suspect]
     Active Substance: TEZEPELUMAB-EKKO
     Indication: Asthma
     Dosage: 1 DOSAGE FORM, Q4W
     Dates: start: 20241107
  2. TEZSPIRE [Suspect]
     Active Substance: TEZEPELUMAB-EKKO
     Dosage: 1 DOSAGE FORM, UNK, FREQUENCY: Q4WK
     Dates: start: 20240215, end: 20240822

REACTIONS (2)
  - Fatigue [Recovered/Resolved]
  - Hypertension [Not Recovered/Not Resolved]

NARRATIVE: CASE EVENT DATE: 20240101
